FAERS Safety Report 8954186 (Version 1)
Quarter: 2012Q4

REPORT INFORMATION
  Report Type: 
  Country: FR (occurrence: FR)
  Receive Date: 20121207
  Receipt Date: 20121207
  Transmission Date: 20130627
  Serious: Yes (Hospitalization)
  Sender: FDA-Public Use
  Company Number: FR-MERCK-1212FRA000874

PATIENT
  Age: 68 Year
  Sex: Female
  Weight: 87 kg

DRUGS (9)
  1. VICTRELIS [Suspect]
     Indication: HEPATITIS C
     Dosage: 800 mg, tid
     Route: 048
     Dates: start: 20110804
  2. VIRAFERONPEG [Suspect]
     Indication: HEPATITIS C
     Dosage: 120 Microgram, qw
     Route: 058
     Dates: start: 20110711
  3. REBETOL [Suspect]
     Indication: HEPATITIS C
     Dosage: 1200 mg, qw
     Route: 048
     Dates: start: 20110711
  4. ARANESP (DARBEPOETIN ALFA) [Concomitant]
     Indication: ANAEMIA
     Dosage: 500 Microgram, qow
     Dates: start: 20111010
  5. LEVOTHYROX [Concomitant]
     Indication: HYPOTHYROIDISM
     Dosage: 200 Microgram, qd
     Dates: start: 2000
  6. AVLOCARDYL [Concomitant]
     Indication: HYPERTENSION
     Dosage: 40 mg, qd
  7. DIAMICRON [Concomitant]
     Indication: TYPE 2 DIABETES MELLITUS
     Dosage: 60 mg, UNK
  8. KALEORID [Concomitant]
     Indication: HYPERTENSION
     Dosage: 1000 mg, qd
  9. SPIRONOLACTONE [Concomitant]
     Indication: HYPERTENSION
     Dosage: UNK

REACTIONS (2)
  - Anaemia [Recovered/Resolved]
  - Anaemia [Recovered/Resolved]
